FAERS Safety Report 15293853 (Version 1)
Quarter: 2018Q3

REPORT INFORMATION
  Report Type: Spontaneous
  Country: US (occurrence: US)
  Receive Date: 20180820
  Receipt Date: 20180820
  Transmission Date: 20181010
  Serious: Yes (Other)
  Sender: FDA-Public Use
  Company Number: US-VANDA PHARMACEUTICALS, INC-2018TASUS002447

PATIENT
  Age: 47 Year
  Sex: Female

DRUGS (1)
  1. HETLIOZ [Suspect]
     Active Substance: TASIMELTEON
     Indication: CIRCADIAN RHYTHM SLEEP DISORDER
     Dosage: 20 MG, QD (EVERY 24 HOURS)
     Route: 048

REACTIONS (2)
  - Road traffic accident [Unknown]
  - Muscle spasms [Unknown]

NARRATIVE: CASE EVENT DATE: 201807
